FAERS Safety Report 13993014 (Version 1)
Quarter: 2017Q3

REPORT INFORMATION
  Report Type: Spontaneous
  Country: FR (occurrence: FR)
  Receive Date: 20170920
  Receipt Date: 20170920
  Transmission Date: 20171128
  Serious: Yes (Hospitalization)
  Sender: FDA-Public Use
  Company Number: FR-PFIZER INC-2017402064

PATIENT
  Age: 60 Year
  Sex: Female

DRUGS (6)
  1. YERVOY [Suspect]
     Active Substance: IPILIMUMAB
     Indication: MALIGNANT MELANOMA
     Dosage: 279 MG, CYCLIC
     Route: 042
     Dates: start: 20170713, end: 20170713
  2. INEXIUM /01479302/ [Concomitant]
     Active Substance: ESOMEPRAZOLE MAGNESIUM
  3. SOLUPRED /00016217/ [Suspect]
     Active Substance: PREDNISOLONE
     Indication: CANCER SURGERY
     Dosage: UNK
     Route: 048
     Dates: start: 20170803, end: 20170804
  4. KEPPRA [Concomitant]
     Active Substance: LEVETIRACETAM
  5. MEDROL [Suspect]
     Active Substance: METHYLPREDNISOLONE
     Indication: CANCER SURGERY
     Dosage: UNK
     Route: 048
     Dates: start: 20170805, end: 20170814
  6. DOLIPRANE [Concomitant]
     Active Substance: ACETAMINOPHEN

REACTIONS (4)
  - Pyrexia [Recovered/Resolved]
  - Alveolitis [Not Recovered/Not Resolved]
  - Pneumocystis jirovecii infection [Not Recovered/Not Resolved]
  - Dyspnoea [Recovering/Resolving]

NARRATIVE: CASE EVENT DATE: 20170818
